FAERS Safety Report 24867164 (Version 1)
Quarter: 2025Q1

REPORT INFORMATION
  Report Type: Spontaneous
  Country: US (occurrence: US)
  Receive Date: 20250121
  Receipt Date: 20250121
  Transmission Date: 20250409
  Serious: Yes (Other)
  Sender: MYLAN
  Company Number: US-MYLANLABS-2025M1002563

PATIENT
  Age: 85 Year
  Sex: Male

DRUGS (1)
  1. RIVASTIGMINE TRANSDERMAL SYSTEM [Suspect]
     Active Substance: RIVASTIGMINE
     Indication: Dementia Alzheimer^s type
     Route: 062
     Dates: start: 202412, end: 20250107

REACTIONS (6)
  - Hallucination [Recovered/Resolved]
  - Nightmare [Recovering/Resolving]
  - Urinary incontinence [Unknown]
  - Application site swelling [Unknown]
  - Product container seal issue [Unknown]
  - Product substitution issue [Unknown]

NARRATIVE: CASE EVENT DATE: 20241201
